FAERS Safety Report 23998626 (Version 3)
Quarter: 2024Q3

REPORT INFORMATION
  Report Type: Spontaneous
  Country: FR (occurrence: FR)
  Receive Date: 20240621
  Receipt Date: 20240918
  Transmission Date: 20241017
  Serious: Yes (Death, Other)
  Sender: ORGANON
  Company Number: None

PATIENT
  Age: 74 Year
  Sex: Female
  Weight: 74 kg

DRUGS (7)
  1. BETAMETHASONE DIPROPIONATE\BETAMETHASONE SODIUM PHOSPHATE [Suspect]
     Active Substance: BETAMETHASONE DIPROPIONATE\BETAMETHASONE SODIUM PHOSPHATE
     Indication: Joint injection
     Dosage: 1 ML/ARTICULATION (SUSPENSION FOR INJECTION IN PRE-FILLED SYRINGE)
     Route: 014
     Dates: start: 20240521, end: 20240521
  2. LIDOCAINE [Suspect]
     Active Substance: LIDOCAINE
     Indication: Joint injection
     Dosage: 10 MG/ML SOLUTION FOR INJECTION IN PRE-FILLED SYRINGE - 1%, (5 ML, SINGLE)
     Route: 014
     Dates: start: 20240521, end: 20240521
  3. IOPAMIDOL [Suspect]
     Active Substance: IOPAMIDOL
     Indication: Arthroscopy
     Dosage: 6 MILLILITER, ONCE (1 TOTAL) (SINGLE) (SOLUTION INJECTABLE)
     Route: 014
     Dates: start: 20240521, end: 20240521
  4. KARDEGIC [Concomitant]
     Active Substance: ASPIRIN DL-LYSINE
     Dosage: 75 MG, QD (0-1-0)
  5. ATENOLOL [Concomitant]
     Active Substance: ATENOLOL
     Dosage: 50 MG, BID (1-0-1)
  6. CANDESARTAN CILEXETIL\HYDROCHLOROTHIAZIDE [Concomitant]
     Active Substance: CANDESARTAN CILEXETIL\HYDROCHLOROTHIAZIDE
     Dosage: 8 MG/12.5 MG
  7. PRAVASTATIN [Concomitant]
     Active Substance: PRAVASTATIN
     Dosage: 40 MG, QD (0-0-1)

REACTIONS (2)
  - Cardio-respiratory arrest [Fatal]
  - Anaphylactic shock [Fatal]

NARRATIVE: CASE EVENT DATE: 20240521
